FAERS Safety Report 6074764-8 (Version None)
Quarter: 2009Q1

REPORT INFORMATION
  Report Type: 
  Country: None (occurrence: None)
  Receive Date: 20090212
  Receipt Date: 20090203
  Transmission Date: 20090719
  Serious: No
  Sender: FDA-Public Use
  Company Number: MX-JNJFOC-20090201353

PATIENT
  Age: 40 Year
  Sex: Female

DRUGS (6)
  1. RISPERDAL [Suspect]
     Indication: INSOMNIA
     Route: 048
  2. RISPERDAL [Suspect]
     Indication: HEADACHE
     Route: 048
  3. RISPERDAL [Suspect]
     Indication: NAUSEA
     Dosage: 0.5MG/TABLETS/2MG/ 1/4 TABLET EVERY NIGHT/ORAL
     Route: 048
  4. RISPERDAL [Suspect]
     Indication: BIPOLAR DISORDER
     Dosage: 1MG/TABLETS/2MG/HALF TABLET EVERY NIGHT/ORAL
     Route: 048
  5. CLONACEPAN [Concomitant]
     Indication: BIPOLAR DISORDER
     Route: 048
  6. VALPROIC ACID [Concomitant]
     Indication: BIPOLAR DISORDER
     Route: 065

REACTIONS (3)
  - DRUG EXPOSURE DURING PREGNANCY [None]
  - OFF LABEL USE [None]
  - THERAPEUTIC RESPONSE UNEXPECTED [None]
